FAERS Safety Report 6596287-X (Version None)
Quarter: 2010Q1

REPORT INFORMATION
  Report Type: 
  Country: None (occurrence: None)
  Receive Date: 20100223
  Receipt Date: 20100211
  Transmission Date: 20100710
  Serious: Yes (Other)
  Sender: FDA-Public Use
  Company Number: PHHY2009DE41650

PATIENT
  Sex: Female
  Weight: 63 kg

DRUGS (1)
  1. FEMARA [Suspect]
     Indication: BREAST CANCER
     Dosage: 2.5 MG, QD
     Route: 048
     Dates: start: 20090101, end: 20090101

REACTIONS (3)
  - ANTINUCLEAR ANTIBODY POSITIVE [None]
  - COLLAGEN DISORDER [None]
  - PERICHONDRITIS [None]
